FAERS Safety Report 6674985-7 (Version None)
Quarter: 2010Q2

REPORT INFORMATION
  Report Type: 
  Country: None (occurrence: None)
  Receive Date: 20100409
  Receipt Date: 20100407
  Transmission Date: 20101027
  Serious: Yes (Hospitalization)
  Sender: FDA-Public Use
  Company Number: FR-SANOFI-AVENTIS-2010SA019792

PATIENT
  Age: 34 Year
  Sex: Female

DRUGS (2)
  1. CLOMIPHENE CITRATE [Suspect]
     Route: 048
     Dates: start: 20100107, end: 20100207
  2. DUPHASTON [Concomitant]
     Route: 048

REACTIONS (2)
  - UVEITIS [None]
  - VISION BLURRED [None]
